FAERS Safety Report 13155495 (Version 1)
Quarter: 2017Q1

REPORT INFORMATION
  Report Type: Spontaneous
  Country: FR (occurrence: FR)
  Receive Date: 20170126
  Receipt Date: 20170126
  Transmission Date: 20170428
  Serious: Yes (Hospitalization)
  Sender: FDA-Public Use
  Company Number: FR-PFIZER INC-2017027619

PATIENT
  Age: 84 Year
  Sex: Male

DRUGS (2)
  1. ZYVOXID [Suspect]
     Active Substance: LINEZOLID
     Indication: DEVICE RELATED INFECTION
     Dosage: 600 MG, 2X/DAY
     Route: 048
     Dates: start: 20151203, end: 20160114
  2. TARGOCID [Suspect]
     Active Substance: TEICOPLANIN
     Indication: DEVICE RELATED INFECTION
     Dosage: 400 MG, 2X/DAY
     Route: 041
     Dates: start: 20151203, end: 20160114

REACTIONS (3)
  - Diarrhoea [Recovered/Resolved]
  - General physical health deterioration [Recovered/Resolved]
  - Vomiting [Recovered/Resolved]

NARRATIVE: CASE EVENT DATE: 201512
